FAERS Safety Report 14017186 (Version 1)
Quarter: 2017Q3

REPORT INFORMATION
  Report Type: Spontaneous
  Country: JP (occurrence: JP)
  Receive Date: 20170927
  Receipt Date: 20170927
  Transmission Date: 20171128
  Serious: Yes (Hospitalization, Other)
  Sender: FDA-Public Use
  Company Number: JP-PFIZER INC-2017408231

PATIENT
  Age: 43 Year
  Sex: Male

DRUGS (1)
  1. CHAMPIX [Suspect]
     Active Substance: VARENICLINE TARTRATE
     Indication: SMOKING CESSATION THERAPY
     Dosage: UNK
     Route: 048

REACTIONS (11)
  - Aggression [Unknown]
  - Irritability [Unknown]
  - Decreased appetite [Unknown]
  - Depression [Unknown]
  - Disturbance in attention [Unknown]
  - Diabetes mellitus [Not Recovered/Not Resolved]
  - Liver disorder [Unknown]
  - Malaise [Recovered/Resolved]
  - Anxiety [Not Recovered/Not Resolved]
  - Alcoholism [Unknown]
  - Insomnia [Unknown]
